FAERS Safety Report 21642533 (Version 2)
Quarter: 2022Q4

REPORT INFORMATION
  Report Type: Report from Study
  Country: US (occurrence: US)
  Receive Date: 20221125
  Receipt Date: 20221202
  Transmission Date: 20230113
  Serious: Yes (Life-Threatening, Hospitalization, Disabling, Other)
  Sender: FDA-Public Use
  Company Number: US-JNJFOC-20221150554

PATIENT
  Age: 6 Decade
  Sex: Male
  Weight: 88.530 kg

DRUGS (2)
  1. STELARA [Suspect]
     Active Substance: USTEKINUMAB
     Indication: Colitis ulcerative
     Route: 058
     Dates: start: 202109, end: 202206
  2. STELARA [Suspect]
     Active Substance: USTEKINUMAB

REACTIONS (11)
  - Nerve injury [Unknown]
  - Colitis ulcerative [Not Recovered/Not Resolved]
  - Autoimmune disorder [Unknown]
  - Inflammatory marker increased [Unknown]
  - Visual impairment [Unknown]
  - Muscle spasms [Unknown]
  - Arterial disorder [Unknown]
  - Lung disorder [Unknown]
  - Muscular weakness [Unknown]
  - Influenza [Recovered/Resolved]
  - Depression [Unknown]
